FAERS Safety Report 21015164 (Version 1)
Quarter: 2022Q2

REPORT INFORMATION
  Report Type: Report from Study
  Country: KR (occurrence: KR)
  Receive Date: 20220628
  Receipt Date: 20220628
  Transmission Date: 20220721
  Serious: Yes (Other)
  Sender: FDA-Public Use
  Company Number: KR-KYOWAKIRIN-2022AKK009537

PATIENT
  Sex: Male

DRUGS (2)
  1. FILGRASTIM [Suspect]
     Active Substance: FILGRASTIM
     Indication: Malignant lymphoid neoplasm
     Dosage: 10 MICROGRAM/KILOGRAM, QD
     Route: 065
  2. ETOPOSIDE [Concomitant]
     Active Substance: ETOPOSIDE
     Indication: Malignant lymphoid neoplasm
     Dosage: 175 MILLIGRAM/SQ. METER, QD
     Route: 065

REACTIONS (18)
  - Neutropenia [Unknown]
  - Hepatotoxicity [Unknown]
  - Febrile neutropenia [Unknown]
  - Thrombocytopenia [Unknown]
  - Anaemia [Unknown]
  - Red blood cell transfusion [Unknown]
  - Platelet transfusion [Unknown]
  - Decreased appetite [Unknown]
  - Insomnia [Unknown]
  - Diarrhoea [Unknown]
  - Mucosal inflammation [Unknown]
  - Dyspnoea [Unknown]
  - Rhinorrhoea [Unknown]
  - Pruritus [Unknown]
  - Fatigue [Unknown]
  - Myalgia [Unknown]
  - Nausea [Unknown]
  - Headache [Unknown]
